FAERS Safety Report 9708032 (Version 2)
Quarter: 2014Q1

REPORT INFORMATION
  Report Type: Spontaneous
  Country: ES (occurrence: ES)
  Receive Date: 20131125
  Receipt Date: 20140116
  Transmission Date: 20141002
  Serious: Yes (Other)
  Sender: FDA-Public Use
  Company Number: ES-BAYER-2013-143984

PATIENT
  Sex: 0

DRUGS (1)
  1. ANTIHEMOPHILIC FACTOR VIII (RECOMBINANT), SUCROSE FORMULATED [Suspect]
     Indication: FACTOR VIII DEFICIENCY

REACTIONS (1)
  - Acute myocardial infarction [Unknown]
